FAERS Safety Report 19862974 (Version 2)
Quarter: 2021Q4

REPORT INFORMATION
  Report Type: Spontaneous
  Country: SI (occurrence: SI)
  Receive Date: 20210921
  Receipt Date: 20211012
  Transmission Date: 20220303
  Serious: Yes (Other)
  Sender: FDA-Public Use
  Company Number: SI-BAYER-2021-213337

PATIENT

DRUGS (10)
  1. EYLEA [Suspect]
     Active Substance: AFLIBERCEPT
     Indication: Product used for unknown indication
     Dosage: 1 DF, QD
     Route: 031
     Dates: start: 20210326, end: 20210326
  2. EYLEA [Suspect]
     Active Substance: AFLIBERCEPT
     Dosage: 1 DF, QD
     Route: 031
     Dates: start: 20210424, end: 20210424
  3. EYLEA [Suspect]
     Active Substance: AFLIBERCEPT
     Dosage: 1 DF, QD
     Route: 031
     Dates: start: 20210518, end: 20210518
  4. EYLEA [Suspect]
     Active Substance: AFLIBERCEPT
     Dosage: 1 DF, QD
     Route: 031
     Dates: start: 20210624, end: 20210624
  5. EYLEA [Suspect]
     Active Substance: AFLIBERCEPT
     Dosage: 1 DF, QD
     Route: 031
     Dates: start: 20210824, end: 20210824
  6. BEOVU [Concomitant]
     Active Substance: BROLUCIZUMAB-DBLL
     Indication: Product used for unknown indication
     Dosage: UNK
     Dates: start: 20210324, end: 20210324
  7. BEOVU [Concomitant]
     Active Substance: BROLUCIZUMAB-DBLL
     Dosage: UNK
     Dates: start: 20210423, end: 20210423
  8. BEOVU [Concomitant]
     Active Substance: BROLUCIZUMAB-DBLL
     Dosage: UNK
     Dates: start: 20210525, end: 20210525
  9. BEOVU [Concomitant]
     Active Substance: BROLUCIZUMAB-DBLL
     Dosage: UNK
     Dates: start: 20210709, end: 20210709
  10. BEOVU [Concomitant]
     Active Substance: BROLUCIZUMAB-DBLL
     Dosage: UNK
     Dates: start: 20210819, end: 20210819

REACTIONS (1)
  - Retinal disorder [Unknown]
